FAERS Safety Report 9220045 (Version 2)
Quarter: 2013Q2

REPORT INFORMATION
  Report Type: Spontaneous
  Country: US (occurrence: US)
  Receive Date: 20130409
  Receipt Date: 20130506
  Transmission Date: 20140414
  Serious: Yes (Other)
  Sender: FDA-Public Use
  Company Number: US-ROCHE-1209743

PATIENT
  Age: 56 Year
  Sex: Male

DRUGS (1)
  1. ACTILYSE [Suspect]
     Indication: ISCHAEMIC STROKE
     Route: 013

REACTIONS (3)
  - Subarachnoid haemorrhage [Unknown]
  - Drug effect decreased [Unknown]
  - Intracranial pressure increased [Unknown]
